FAERS Safety Report 5486019-0 (Version None)
Quarter: 2007Q4

REPORT INFORMATION
  Report Type: 
  Country: None (occurrence: None)
  Receive Date: 20071012
  Receipt Date: 20071001
  Transmission Date: 20080405
  Serious: Yes (Death)
  Sender: FDA-Public Use
  Company Number: 162171ISR

PATIENT
  Age: 37 Year
  Sex: Male

DRUGS (4)
  1. AMITRIPTYLINE HCL [Suspect]
     Indication: DEPRESSION
     Dosage: 3DF (1 IN 1 D) ORAL
     Route: 048
     Dates: start: 20060512, end: 20070519
  2. DICLOFENAC [Suspect]
     Indication: PAIN IN EXTREMITY
     Dosage: 1DF (2 IN 1 D) ORAL
     Route: 048
     Dates: start: 20070518, end: 20070519
  3. DULOXETINE [Suspect]
     Indication: DEPRESSION
     Dosage: 1DF (1 IN 1 D)
     Dates: start: 20070404, end: 20070519
  4. TRAMADOL HCL [Suspect]
     Indication: PAIN IN EXTREMITY
     Dosage: ORAL
     Route: 048
     Dates: start: 20070518, end: 20070519

REACTIONS (1)
  - SUDDEN DEATH [None]
